FAERS Safety Report 9664618 (Version 1)
Quarter: 2013Q4

REPORT INFORMATION
  Report Type: Report from Study
  Country: US (occurrence: US)
  Receive Date: 20131101
  Receipt Date: 20131101
  Transmission Date: 20140711
  Serious: Yes (Hospitalization)
  Sender: FDA-Public Use
  Company Number: US-ABBVIE-13P-163-1162137-00

PATIENT
  Age: 56 Year
  Sex: Female
  Weight: 86.26 kg

DRUGS (8)
  1. HUMIRA [Suspect]
     Indication: RHEUMATOID ARTHRITIS
     Route: 058
     Dates: start: 20130730
  2. METHOTREXATE [Concomitant]
     Indication: RHEUMATOID ARTHRITIS
  3. PREDNISONE [Concomitant]
     Indication: RHEUMATOID ARTHRITIS
  4. FOLIC ACID [Concomitant]
     Indication: VITAMIN SUPPLEMENTATION
  5. MELOXICAM [Concomitant]
     Indication: RHEUMATOID ARTHRITIS
  6. FOSAMAX [Concomitant]
     Indication: OSTEOPOROSIS
  7. LISINOPRIL [Concomitant]
     Indication: HYPERTENSION
  8. UNKNOWN MEDICATION [Concomitant]
     Indication: HYPOTHYROIDISM

REACTIONS (5)
  - Diverticulum [Recovered/Resolved]
  - Intestinal perforation [Recovered/Resolved]
  - Joint swelling [Recovered/Resolved]
  - Pain in extremity [Recovered/Resolved]
  - Local swelling [Recovered/Resolved]
